FAERS Safety Report 16307239 (Version 1)
Quarter: 2019Q2

REPORT INFORMATION
  Report Type: Spontaneous
  Country: BR (occurrence: BR)
  Receive Date: 20190514
  Receipt Date: 20190514
  Transmission Date: 20190711
  Serious: Yes (Hospitalization)
  Sender: FDA-Public Use
  Company Number: BR-SA-2019SA116057

PATIENT
  Age: 15 Month
  Sex: Female
  Weight: 9.64 kg

DRUGS (3)
  1. VITAMIN A + D [Concomitant]
     Indication: VITAMIN SUPPLEMENTATION
     Dosage: UNK
  2. FERROUS SULPHATE [FERROUS SULFATE] [Concomitant]
     Active Substance: FERROUS SULFATE
     Indication: MINERAL SUPPLEMENTATION
  3. ALLEGRA PEDIATRICO [Suspect]
     Active Substance: FEXOFENADINE HYDROCHLORIDE
     Indication: RHINITIS ALLERGIC
     Dosage: 2.5 ML, Q12H
     Dates: start: 20190423, end: 20190428

REACTIONS (3)
  - Bronchiolitis [Recovering/Resolving]
  - Product use issue [Unknown]
  - Pyrexia [Recovering/Resolving]

NARRATIVE: CASE EVENT DATE: 20190428
